FAERS Safety Report 9607793 (Version 3)
Quarter: 2013Q4

REPORT INFORMATION
  Report Type: Report from Study
  Country: FR (occurrence: FR)
  Receive Date: 20131009
  Receipt Date: 20131204
  Transmission Date: 20140711
  Serious: Yes (Death, Hospitalization, Other)
  Sender: FDA-Public Use
  Company Number: FR-MILLENNIUM PHARMACEUTICALS, INC.-2013-05886

PATIENT
  Sex: 0

DRUGS (3)
  1. VELCADE [Suspect]
     Indication: PLASMA CELL MYELOMA
     Dosage: 1.3 MG, UNK
     Route: 065
     Dates: start: 20111129, end: 20120629
  2. REVLIMID [Suspect]
     Indication: PLASMA CELL MYELOMA
     Dosage: 15 MG, UNK
     Route: 065
     Dates: start: 20111129, end: 20130728
  3. DEXAMETHASONE [Suspect]
     Indication: PLASMA CELL MYELOMA
     Dosage: 10 MG, UNK
     Route: 065
     Dates: start: 20111129, end: 20120630

REACTIONS (1)
  - Glioblastoma [Fatal]
